FAERS Safety Report 8607450-8 (Version None)
Quarter: 2012Q3

REPORT INFORMATION
  Report Type: 
  Country: None (occurrence: None)
  Receive Date: 20120821
  Receipt Date: 20120809
  Transmission Date: 20120928
  Serious: Yes (Other)
  Sender: FDA-Public Use
  Company Number: DE-CELGENEUS-062-21880-12050278

PATIENT

DRUGS (1)
  1. REVLIMID [Suspect]
     Indication: MULTIPLE MYELOMA
     Route: 048

REACTIONS (8)
  - INFECTION REACTIVATION [None]
  - MULTIPLE MYELOMA [None]
  - INFECTION [None]
  - FATIGUE [None]
  - THROMBOCYTOPENIA [None]
  - NEUTROPENIA [None]
  - ACUTE GRAFT VERSUS HOST DISEASE [None]
  - NEUROPATHY PERIPHERAL [None]
